FAERS Safety Report 5253405-3 (Version None)
Quarter: 2007Q1

REPORT INFORMATION
  Report Type: 
  Country: None (occurrence: None)
  Receive Date: 20070226
  Receipt Date: 20070213
  Transmission Date: 20070707
  Serious: Yes (Hospitalization)
  Sender: FDA-Public Use
  Company Number: 2007PV030186

PATIENT
  Age: 71 Year
  Sex: Male
  Weight: 69.8539 kg

DRUGS (11)
  1. BYETTA [Suspect]
     Indication: DIABETES MELLITUS
     Dosage: SEE IMAGE
     Dates: start: 20061117, end: 20061215
  2. BYETTA [Suspect]
     Indication: DIABETES MELLITUS
     Dosage: SEE IMAGE
     Dates: start: 20061215
  3. METFORMIN HCL [Concomitant]
  4. ACTOS [Concomitant]
  5. LIPITOR [Concomitant]
  6. LOTREL [Concomitant]
  7. ASPIRIN [Concomitant]
  8. GLIMPIRIDE [Concomitant]
  9. ACYCLOVIR [Concomitant]
  10. EYE DROPS [Concomitant]
  11. HALCION [Concomitant]

REACTIONS (9)
  - ANOREXIA [None]
  - BLOOD CREATININE INCREASED [None]
  - DIZZINESS [None]
  - MYOCARDIAL INFARCTION [None]
  - MYOCARDIAL ISCHAEMIA [None]
  - PALPITATIONS [None]
  - SUPRAVENTRICULAR TACHYCARDIA [None]
  - VIRAL UPPER RESPIRATORY TRACT INFECTION [None]
  - WEIGHT DECREASED [None]
